FAERS Safety Report 4881518-4 (Version None)
Quarter: 2006Q1

REPORT INFORMATION
  Report Type: 
  Country: None (occurrence: None)
  Receive Date: 20060116
  Receipt Date: 20060112
  Transmission Date: 20060701
  Serious: Yes (Life-Threatening, Hospitalization, Disabling, Other)
  Sender: FDA-Public Use
  Company Number: US-GLAXOSMITHKLINE-A0589005A

PATIENT
  Age: 77 Year
  Sex: Female

DRUGS (1)
  1. COREG [Suspect]
     Indication: VENTRICULAR DYSFUNCTION
     Dosage: 25MG TWICE PER DAY
     Route: 048

REACTIONS (1)
  - ATRIAL FIBRILLATION [None]
